FAERS Safety Report 12048622 (Version 3)
Quarter: 2016Q1

REPORT INFORMATION
  Report Type: Spontaneous
  Country: JP (occurrence: JP)
  Receive Date: 20160208
  Receipt Date: 20160318
  Transmission Date: 20160526
  Serious: Yes (Other)
  Sender: FDA-Public Use
  Company Number: JP-PFIZER INC-2015330165

PATIENT
  Sex: Female

DRUGS (3)
  1. SOLANAX [Suspect]
     Active Substance: ALPRAZOLAM
     Indication: ANXIETY
     Dosage: 1 MG, AT 1 MG DAILY OR AS NEEDED BASIS
     Route: 064
     Dates: start: 20090610
  2. JZOLOFT [Suspect]
     Active Substance: SERTRALINE HYDROCHLORIDE
     Indication: PANIC ATTACK
     Dosage: 50 MG, 2X/DAY
     Route: 064
     Dates: start: 201501
  3. JZOLOFT [Suspect]
     Active Substance: SERTRALINE HYDROCHLORIDE
     Indication: ANXIETY
     Dosage: 50 MG, DAILY
     Route: 064
     Dates: start: 20090610

REACTIONS (6)
  - Hypoglycaemia neonatal [Unknown]
  - Muscle spasms [Recovered/Resolved]
  - Respiratory disorder neonatal [Unknown]
  - Maternal exposure timing unspecified [Unknown]
  - Drug withdrawal syndrome [Unknown]
  - Convulsion neonatal [Unknown]

NARRATIVE: CASE EVENT DATE: 201511
